FAERS Safety Report 8208468-X (Version None)
Quarter: 2012Q1

REPORT INFORMATION
  Report Type: 
  Country: None (occurrence: None)
  Receive Date: 20120314
  Receipt Date: 20120308
  Transmission Date: 20120608
  Serious: Yes (Hospitalization)
  Sender: FDA-Public Use
  Company Number: ES-GLAXOSMITHKLINE-B0784740A

PATIENT
  Sex: Male
  Weight: 74 kg

DRUGS (1)
  1. OFATUMUMAB [Suspect]
     Indication: HODGKIN'S DISEASE
     Route: 042
     Dates: start: 20120210

REACTIONS (1)
  - HERPES ZOSTER [None]
